FAERS Safety Report 24035570 (Version 1)
Quarter: 2024Q3

REPORT INFORMATION
  Report Type: Spontaneous
  Country: US (occurrence: US)
  Receive Date: 20240701
  Receipt Date: 20240701
  Transmission Date: 20241016
  Serious: Yes (Life-Threatening, Other)
  Sender: AMGEN
  Company Number: US-AMGEN-USASP2024124520

PATIENT

DRUGS (8)
  1. PREDNISONE [Suspect]
     Active Substance: PREDNISONE
     Indication: T-cell lymphoma refractory
     Dosage: UNK
     Route: 065
  2. PRALATREXATE [Suspect]
     Active Substance: PRALATREXATE
     Indication: T-cell lymphoma refractory
     Dosage: 25 MILLIGRAM/SQ. METER
     Route: 042
  3. ROMIDEPSIN [Suspect]
     Active Substance: ROMIDEPSIN
     Indication: T-cell lymphoma refractory
     Dosage: 12 MILLIGRAM/SQ. METER, ON DAYS 1 AND 15 OF A 28-DAY CYCLE
     Route: 042
  4. FOLIC ACID [Concomitant]
     Active Substance: FOLIC ACID
     Dosage: 1 MILLIGRAM, QD STARTING 7DAYS PRIOR TO INITIATION OF STUDY DRUGS
     Route: 048
  5. VITAMIN B12 [Concomitant]
     Active Substance: CYANOCOBALAMIN
     Dosage: 1000 MICROGRAM, EVERY 8-10WEEKS DURING TREATMENT
     Route: 030
  6. LEUCOVORIN [Concomitant]
     Active Substance: LEUCOVORIN\LEUCOVORIN CALCIUM
     Indication: Prophylaxis
     Dosage: 15 MILLIGRAM, BID, ON DAYS 3-13 AND 17-27
     Route: 048
  7. ONDANSETRON [Concomitant]
     Active Substance: ONDANSETRON
     Dosage: 16 MILLIGRAM
     Route: 042
  8. DEXAMETHASONE [Concomitant]
     Active Substance: DEXAMETHASONE
     Dosage: 12 MILLIGRAM
     Route: 042

REACTIONS (19)
  - Appendicitis [Unknown]
  - Small intestinal obstruction [Unknown]
  - Staphylococcal bacteraemia [Unknown]
  - Sepsis [Unknown]
  - Toxicity to various agents [Unknown]
  - Hypokalaemia [Unknown]
  - Cerebrovascular accident [Unknown]
  - T-cell lymphoma [Unknown]
  - Adverse event [Unknown]
  - Diarrhoea [Unknown]
  - Abdominal pain [Unknown]
  - Vomiting [Unknown]
  - Hyponatraemia [Unknown]
  - Anaemia [Unknown]
  - Pyrexia [Unknown]
  - Lymph gland infection [Unknown]
  - Sinus tachycardia [Unknown]
  - Off label use [Unknown]
  - Nausea [Unknown]
